FAERS Safety Report 5385210-1 (Version None)
Quarter: 2007Q3

REPORT INFORMATION
  Report Type: 
  Country: None (occurrence: None)
  Receive Date: 20070712
  Receipt Date: 20070702
  Transmission Date: 20080115
  Serious: Yes (Hospitalization, Other)
  Sender: FDA-Public Use
  Company Number: US-ASTRAZENECA-2007UW01940

PATIENT
  Age: 11859 Day
  Sex: Female
  Weight: 107.3 kg

DRUGS (28)
  1. SEROQUEL [Suspect]
     Indication: SLEEP DISORDER
     Dosage: 75MG TO 400MG
     Route: 048
     Dates: start: 20030124, end: 20031110
  2. ZYPREXA [Concomitant]
     Indication: BIPOLAR DISORDER
     Dates: start: 20021001, end: 20030201
  3. WELLBUTRIN [Concomitant]
     Indication: DEPRESSION
     Dates: start: 20030428
  4. METFORMIN [Concomitant]
     Dates: start: 20050805, end: 20060101
  5. LANTUS [Concomitant]
     Dates: start: 20050805
  6. HUMALOG [Concomitant]
     Dates: start: 20050805
  7. LOVASTATIN [Concomitant]
     Indication: BLOOD CHOLESTEROL INCREASED
     Dates: start: 20050928
  8. VERAPAMIL [Concomitant]
     Indication: MIGRAINE
  9. TOPAMAX [Concomitant]
  10. LITHIUM CARBONATE [Concomitant]
  11. COUMADIN [Concomitant]
     Dates: start: 20020101, end: 20020101
  12. BYETTA [Concomitant]
     Dates: start: 20060101
  13. HYZAAR [Concomitant]
     Indication: HYPERTENSION
     Dates: start: 20060101
  14. ACETAMINOPHEN AND HYDROCODONE BITARTRATE [Concomitant]
     Indication: PAIN
     Dosage: 5/500MG
     Dates: start: 20060601
  15. WARFARIN SODIUM [Concomitant]
     Dates: start: 20020528
  16. OXYCODONE AND ACETAMINOPHEN [Concomitant]
     Dates: start: 20030101
  17. FLUOXETINE [Concomitant]
     Dates: start: 20060101
  18. PREVACID [Concomitant]
     Dates: start: 20030625
  19. PREDNISONE [Concomitant]
     Dosage: 5 - 10 MG
     Dates: start: 20030428
  20. MIGRATINE [Concomitant]
     Dates: start: 20030324
  21. FOLIC ACID [Concomitant]
  22. MIRALAX [Concomitant]
     Dates: start: 20030203
  23. DICYCLOMINE [Concomitant]
  24. PLAQUENIL [Concomitant]
     Dates: start: 20020816
  25. EFFEXOR XR [Concomitant]
     Dates: start: 20010911
  26. TOPROL-XL [Concomitant]
     Dates: start: 20060601
  27. HYDROMORPHONE HCL [Concomitant]
     Route: 048
     Dates: start: 20060101
  28. KLONOPIN [Concomitant]
     Dates: start: 20031125

REACTIONS (6)
  - DEEP VEIN THROMBOSIS [None]
  - NEUROLEPTIC MALIGNANT SYNDROME [None]
  - PULMONARY EMBOLISM [None]
  - SUICIDE ATTEMPT [None]
  - SYSTEMIC LUPUS ERYTHEMATOSUS [None]
  - TYPE 2 DIABETES MELLITUS [None]
